FAERS Safety Report 17601961 (Version 1)
Quarter: 2020Q1

REPORT INFORMATION
  Report Type: Spontaneous
  Country: FR (occurrence: FR)
  Receive Date: 20200330
  Receipt Date: 20200330
  Transmission Date: 20200409
  Serious: Yes (Other)
  Sender: FDA-Public Use
  Company Number: FR-ANIPHARMA-2020-FR-000080

PATIENT
  Sex: 0

DRUGS (2)
  1. ACEBUTOLOL HYDROCHLORIDE (NON-SPECIFIC) [Suspect]
     Active Substance: ACEBUTOLOL HYDROCHLORIDE
     Indication: PRODUCT USED FOR UNKNOWN INDICATION
  2. ACETAMINOPHEN + PSEUDOEPHEDRINE + CHLORPHENIRAMINE [Suspect]
     Active Substance: ACETAMINOPHEN\CHLORPHENIRAMINE\PSEUDOEPHEDRINE
     Indication: PRODUCT USED FOR UNKNOWN INDICATION

REACTIONS (2)
  - Atrial fibrillation [Unknown]
  - Drug interaction [Unknown]
